FAERS Safety Report 7920114-9 (Version None)
Quarter: 2011Q4

REPORT INFORMATION
  Report Type: 
  Country: None (occurrence: None)
  Receive Date: 20111117
  Receipt Date: 20111116
  Transmission Date: 20120403
  Serious: Yes (Other)
  Sender: FDA-Public Use
  Company Number: CN-ROCHE-1013861

PATIENT
  Age: 25 Year
  Sex: Female

DRUGS (2)
  1. RIBAVIRIN (NON-ROCHE/NON-COMPARATOR) [Concomitant]
     Indication: HEPATITIS C
  2. PEGINTERFERON ALFA-2A [Suspect]
     Indication: HEPATITIS C
     Route: 058
     Dates: start: 20110112, end: 20110706

REACTIONS (1)
  - WHITE BLOOD CELL COUNT DECREASED [None]
